FAERS Safety Report 6119924-2 (Version None)
Quarter: 2009Q1

REPORT INFORMATION
  Report Type: 
  Country: None (occurrence: None)
  Receive Date: 20090316
  Receipt Date: 20090304
  Transmission Date: 20090719
  Serious: Yes (Hospitalization)
  Sender: FDA-Public Use
  Company Number: FR-WYE-H08503909

PATIENT
  Sex: Male

DRUGS (7)
  1. INIPOMP [Suspect]
     Route: 048
     Dates: start: 20080101, end: 20081230
  2. PLAVIX [Concomitant]
     Dosage: UNKNOWN
  3. SULFARLEM [Concomitant]
     Dosage: UNKNOWN
  4. DETENSIEL [Concomitant]
     Dosage: UNKNOWN
  5. TAHOR [Concomitant]
     Dosage: 40 MG
  6. TRIFLUCAN [Suspect]
     Route: 042
     Dates: start: 20081211, end: 20081214
  7. KARDEGIC [Concomitant]
     Dosage: UNKNOWN

REACTIONS (6)
  - CHOLESTASIS [None]
  - CONFUSIONAL STATE [None]
  - HALLUCINATION [None]
  - INFLAMMATION [None]
  - LEUKOARAIOSIS [None]
  - RENAL FAILURE [None]
